FAERS Safety Report 6439761-9 (Version None)
Quarter: 2009Q4

REPORT INFORMATION
  Report Type: 
  Country: None (occurrence: None)
  Receive Date: 20091112
  Receipt Date: 20091112
  Transmission Date: 20100525
  Serious: Yes (Hospitalization)
  Sender: FDA-Public Use
  Company Number: None

PATIENT
  Sex: Male
  Weight: 90.45 kg

DRUGS (3)
  1. ZOMETA [Suspect]
     Dosage: 3.5 MG
  2. CALCIUM CARBONATE [Suspect]
     Dosage: 500 MG
  3. VITAMIN D [Suspect]
     Dosage: 400 MILLION IU

REACTIONS (3)
  - AORTIC ANEURYSM [None]
  - AORTIC DISSECTION RUPTURE [None]
  - ATRIAL FIBRILLATION [None]
